FAERS Safety Report 10517425 (Version 3)
Quarter: 2015Q1

REPORT INFORMATION
  Report Type: Spontaneous
  Country: GR (occurrence: GR)
  Receive Date: 20141014
  Receipt Date: 20150122
  Transmission Date: 20150720
  Serious: Yes (Other)
  Sender: FDA-Public Use
  Company Number: ALCN2014GR005641

PATIENT
  Age: 86 Year
  Sex: Female

DRUGS (3)
  1. TOBREX [Suspect]
     Active Substance: TOBRAMYCIN
     Indication: POSTOPERATIVE CARE
     Dosage: UNK
     Route: 047
  2. DISPERSADRON C [Suspect]
     Active Substance: CHLORAMPHENICOL\DEXAMETHASONE
     Indication: POSTOPERATIVE CARE
     Dosage: UNK
     Route: 047
  3. TOBREX [Suspect]
     Active Substance: TOBRAMYCIN
     Indication: OFF LABEL USE

REACTIONS (3)
  - Off label use [Unknown]
  - Eye luxation [Unknown]
  - Device breakage [Unknown]
